FAERS Safety Report 21927544 (Version 1)
Quarter: 2023Q1

REPORT INFORMATION
  Report Type: Spontaneous
  Country: US (occurrence: None)
  Receive Date: 20230130
  Receipt Date: 20230130
  Transmission Date: 20230418
  Serious: Yes (Other)
  Sender: FDA-Public Use
  Company Number: None

PATIENT
  Age: 30 Year
  Sex: Male
  Weight: 99 kg

DRUGS (9)
  1. .DELTA.8-TETRAHYDROCANNABINOL\HERBALS [Suspect]
     Active Substance: .DELTA.8-TETRAHYDROCANNABINOL\HERBALS
     Indication: Pain
     Dosage: OTHER QUANTITY : 2 GUMMIES;?FREQUENCY : DAILY;?
     Route: 048
  2. CELEBREX [Concomitant]
     Active Substance: CELECOXIB
  3. LYRICA [Concomitant]
     Active Substance: PREGABALIN
  4. TRAZODONE [Concomitant]
     Active Substance: TRAZODONE HYDROCHLORIDE
  5. PRAZOSIN [Concomitant]
     Active Substance: PRAZOSIN
  6. TIZANIDINE [Concomitant]
     Active Substance: TIZANIDINE
  7. BUPROPION [Concomitant]
     Active Substance: BUPROPION
  8. CYMBALTA [Concomitant]
     Active Substance: DULOXETINE HYDROCHLORIDE
  9. SUBOXONE [Concomitant]
     Active Substance: BUPRENORPHINE HYDROCHLORIDE\NALOXONE HYDROCHLORIDE

REACTIONS (2)
  - Seizure [None]
  - Dizziness [None]

NARRATIVE: CASE EVENT DATE: 20230129
